FAERS Safety Report 4763249-4 (Version None)
Quarter: 2005Q3

REPORT INFORMATION
  Report Type: 
  Country: None (occurrence: None)
  Receive Date: 20050908
  Receipt Date: 20050902
  Transmission Date: 20060218
  Serious: Yes (Other)
  Sender: FDA-Public Use
  Company Number: PHRM2005FR02365

PATIENT
  Sex: Male

DRUGS (1)
  1. AREDIA [Suspect]
     Route: 042

REACTIONS (6)
  - ARTHRALGIA [None]
  - ATRIAL TACHYCARDIA [None]
  - C-REACTIVE PROTEIN INCREASED [None]
  - INFLUENZA LIKE ILLNESS [None]
  - MALAISE [None]
  - MYALGIA [None]
